FAERS Safety Report 5610797-0 (Version None)
Quarter: 2008Q1

REPORT INFORMATION
  Report Type: 
  Country: None (occurrence: None)
  Receive Date: 20080111
  Receipt Date: 20071026
  Transmission Date: 20080703
  Serious: Yes (Other)
  Sender: FDA-Public Use
  Company Number: HQWYE205917JUL04

PATIENT
  Age: 59 Year
  Sex: Female

DRUGS (3)
  1. PREMPRO [Suspect]
     Indication: HORMONE REPLACEMENT THERAPY
     Dosage: ORAL
     Route: 048
     Dates: start: 19990101, end: 20030101
  2. MEDROXYPROGESTERONE ACETATE [Suspect]
     Dosage: ORAL
     Route: 048
     Dates: start: 19980101, end: 19990101
  3. PROVERA [Suspect]
     Dosage: ORAL
     Route: 048
     Dates: start: 19980101, end: 19990101

REACTIONS (3)
  - ANXIETY [None]
  - BREAST CANCER [None]
  - FEAR [None]
